FAERS Safety Report 7892706-7 (Version None)
Quarter: 2011Q4

REPORT INFORMATION
  Report Type: 
  Country: None (occurrence: None)
  Receive Date: 20111102
  Receipt Date: 20111021
  Transmission Date: 20120403
  Serious: Yes (Hospitalization, Other)
  Sender: FDA-Public Use
  Company Number: NSR_00295_2011

PATIENT
  Age: 24 Year
  Sex: Female

DRUGS (5)
  1. BIPERIDEN HYDROCHLORIDE TAB [Concomitant]
  2. RISPERIDONE [Concomitant]
  3. VALPROIC ACID [Suspect]
     Indication: DEPRESSIVE SYMPTOM
     Dosage: (1000 MG, DAILY)
  4. LITHIUM [Concomitant]
  5. LAMOTRIGINE [Suspect]
     Indication: DEPRESSIVE SYMPTOM
     Dosage: (25 MG, DAILY, DOSE GRADUALLY INCREASED DURING 3 WEEKS) ; (100 MG, DAILY)

REACTIONS (8)
  - SUICIDE ATTEMPT [None]
  - HOMICIDAL IDEATION [None]
  - ANHEDONIA [None]
  - AGITATION [None]
  - SUICIDAL IDEATION [None]
  - STEVENS-JOHNSON SYNDROME [None]
  - TOXIC EPIDERMAL NECROLYSIS [None]
  - MAJOR DEPRESSION [None]
